FAERS Safety Report 7439170-X (Version None)
Quarter: 2011Q2

REPORT INFORMATION
  Report Type: 
  Country: None (occurrence: None)
  Receive Date: 20110427
  Receipt Date: 20110415
  Transmission Date: 20111010
  Serious: Yes (Other)
  Sender: FDA-Public Use
  Company Number: GB-RANBAXY-2011R1-43855

PATIENT
  Sex: Female
  Weight: 56 kg

DRUGS (2)
  1. AMOXICILLIN [Suspect]
     Indication: LOWER RESPIRATORY TRACT INFECTION
     Dosage: 500 MG, UNK
     Route: 048
  2. CERAZETTE [Concomitant]
     Indication: PRODUCT USED FOR UNKNOWN INDICATION
     Dosage: UNK
     Route: 048

REACTIONS (7)
  - HYPERHIDROSIS [None]
  - ABDOMINAL PAIN UPPER [None]
  - DIARRHOEA [None]
  - PRURITUS [None]
  - OCULAR HYPERAEMIA [None]
  - ERYTHEMA [None]
  - VOMITING [None]
